FAERS Safety Report 9031430 (Version 1)
Quarter: 2013Q1

REPORT INFORMATION
  Report Type: Report from Study
  Country: BR (occurrence: BR)
  Receive Date: 20130124
  Receipt Date: 20130124
  Transmission Date: 20140127
  Serious: Yes (Death, Hospitalization)
  Sender: FDA-Public Use
  Company Number: BR-ROCHE-1142015

PATIENT
  Age: 31 Year
  Sex: Female
  Weight: 37 kg

DRUGS (1)
  1. MABTHERA [Suspect]
     Indication: PRODUCT USED FOR UNKNOWN INDICATION
     Dosage: MOST RECENT INFUSION 23/MAR/2012
     Route: 042
     Dates: start: 20110701, end: 20120323

REACTIONS (5)
  - Respiratory failure [Fatal]
  - Asthenia [Fatal]
  - Systemic lupus erythematosus [Fatal]
  - Lung disorder [Recovering/Resolving]
  - Dyspnoea [Not Recovered/Not Resolved]
